FAERS Safety Report 26143032 (Version 1)
Quarter: 2025Q4

REPORT INFORMATION
  Report Type: Spontaneous
  Country: EU (occurrence: EU)
  Receive Date: 20251211
  Receipt Date: 20251211
  Transmission Date: 20260119
  Serious: Yes (Death)
  Sender: TEVA
  Company Number: EU-TEVA-VS-3400234

PATIENT
  Age: 85 Year
  Sex: Female

DRUGS (3)
  1. GABAPENTIN [Suspect]
     Active Substance: GABAPENTIN
     Indication: Herpes zoster
     Dosage: 100 CAPSULES
     Route: 065
     Dates: start: 2024
  2. WARFARIN SODIUM [Concomitant]
     Active Substance: WARFARIN SODIUM
     Indication: Product used for unknown indication
  3. Hydrex [Concomitant]
     Indication: Blood pressure measurement
     Dosage: AT LEAST SOMETIMES

REACTIONS (4)
  - Death [Fatal]
  - Malaise [Unknown]
  - Dyspnoea [Unknown]
  - Tremor [Unknown]
